FAERS Safety Report 15415223 (Version 1)
Quarter: 2018Q3

REPORT INFORMATION
  Report Type: Spontaneous
  Country: None (occurrence: ES)
  Receive Date: 20180921
  Receipt Date: 20180921
  Transmission Date: 20181010
  Serious: Yes (Death)
  Sender: FDA-Public Use
  Company Number: ES-MEDAC PHARMA, INC.-2055217

PATIENT
  Age: 62 Year
  Sex: Female

DRUGS (3)
  1. METOJECT [Suspect]
     Active Substance: METHOTREXATE SODIUM
     Indication: PSORIATIC ARTHROPATHY
     Route: 058
     Dates: start: 20120719, end: 201707
  2. COSENTYX [Suspect]
     Active Substance: SECUKINUMAB
     Dates: start: 201408, end: 201708
  3. METHYLPREDNISOLONE. [Concomitant]
     Active Substance: METHYLPREDNISOLONE
     Dates: start: 201408

REACTIONS (5)
  - Chronic myeloid leukaemia [Fatal]
  - Ischaemic cerebral infarction [Fatal]
  - Syphilis [Recovered/Resolved]
  - Thrombocytopenia [Fatal]
  - Disseminated cytomegaloviral infection [Fatal]

NARRATIVE: CASE EVENT DATE: 201610
